FAERS Safety Report 25403758 (Version 1)
Quarter: 2025Q2

REPORT INFORMATION
  Report Type: Report from Study
  Country: GR (occurrence: GR)
  Receive Date: 20250606
  Receipt Date: 20250606
  Transmission Date: 20250716
  Serious: Yes (Hospitalization, Other)
  Sender: ABBVIE
  Company Number: GR-ABBVIE-5898797

PATIENT
  Age: 58 Year
  Sex: Female
  Weight: 50 kg

DRUGS (2)
  1. CARBIDOPA\LEVODOPA [Suspect]
     Active Substance: CARBIDOPA\LEVODOPA
     Indication: Parkinson^s disease
     Route: 050
     Dates: start: 20210111
  2. CARBIDOPA\LEVODOPA [Suspect]
     Active Substance: CARBIDOPA\LEVODOPA
     Route: 050
     Dates: end: 20240929

REACTIONS (5)
  - Large intestine perforation [Recovering/Resolving]
  - Bedridden [Unknown]
  - Stoma site odour [Unknown]
  - Musculoskeletal stiffness [Unknown]
  - Stoma site discharge [Unknown]

NARRATIVE: CASE EVENT DATE: 20240817
